FAERS Safety Report 9041258 (Version 1)
Quarter: 2013Q1

REPORT INFORMATION
  Report Type: Spontaneous
  Country: US (occurrence: None)
  Receive Date: 20130123
  Receipt Date: 20130123
  Transmission Date: 20140127
  Serious: Yes (Hospitalization)
  Sender: FDA-Public Use
  Company Number: None

PATIENT
  Age: 33 Year
  Sex: 0

DRUGS (1)
  1. LARIAM [Suspect]
     Dates: start: 1991

REACTIONS (23)
  - Vestibular disorder [None]
  - Nausea [None]
  - Phobia [None]
  - Agoraphobia [None]
  - Toxicity to various agents [None]
  - Anxiety [None]
  - Panic attack [None]
  - Nightmare [None]
  - Insomnia [None]
  - Tremor [None]
  - Chills [None]
  - Weight decreased [None]
  - Depression [None]
  - Mental disorder [None]
  - Dizziness [None]
  - Loss of consciousness [None]
  - Tinnitus [None]
  - Hyperacusis [None]
  - Cognitive disorder [None]
  - Aphasia [None]
  - Feeling of body temperature change [None]
  - Emotional disorder [None]
  - Road traffic accident [None]
